FAERS Safety Report 6568860-6 (Version None)
Quarter: 2010Q1

REPORT INFORMATION
  Report Type: 
  Country: None (occurrence: None)
  Receive Date: 20100128
  Receipt Date: 20100113
  Transmission Date: 20100710
  Serious: Yes (Hospitalization, Other)
  Sender: FDA-Public Use
  Company Number: 2010AP000085

PATIENT
  Age: 60 Year
  Sex: Male

DRUGS (6)
  1. LISINOPRIL [Suspect]
     Dosage: 20 MG;BID
  2. NAPROXEN [Suspect]
     Dosage: 500 MG;BID
  3. ACETYLSALICYLIC ACID [Suspect]
  4. AMLODIPINE [Concomitant]
  5. CLOPIDOGREL [Concomitant]
  6. RANITIDINE [Concomitant]

REACTIONS (20)
  - ABDOMINAL DISCOMFORT [None]
  - AREFLEXIA [None]
  - ASTHENIA [None]
  - BLOOD AMYLASE INCREASED [None]
  - BLOOD CALCIUM INCREASED [None]
  - BLOOD PRESSURE SYSTOLIC INCREASED [None]
  - BLOOD SODIUM DECREASED [None]
  - CARBON DIOXIDE DECREASED [None]
  - DIARRHOEA [None]
  - DYSPNOEA [None]
  - ELECTROCARDIOGRAM QRS COMPLEX PROLONGED [None]
  - ELECTROCARDIOGRAM T WAVE ABNORMAL [None]
  - HAEMODIALYSIS [None]
  - HYPERKALAEMIA [None]
  - LIPASE INCREASED [None]
  - NAUSEA [None]
  - QUADRIPARESIS [None]
  - RENAL FAILURE CHRONIC [None]
  - VOMITING [None]
  - WHITE BLOOD CELL COUNT INCREASED [None]
